APPROVED DRUG PRODUCT: SIMBRINZA
Active Ingredient: BRIMONIDINE TARTRATE; BRINZOLAMIDE
Strength: 0.2%;1%
Dosage Form/Route: SUSPENSION/DROPS;OPHTHALMIC
Application: N204251 | Product #001
Applicant: ALCON LABORATORIES INC
Approved: Apr 19, 2013 | RLD: Yes | RS: Yes | Type: RX

PATENTS:
Patent 9044484 | Expires: Oct 30, 2030
Patent 9421265 | Expires: Jun 17, 2030